FAERS Safety Report 6935960-8 (Version None)
Quarter: 2010Q3

REPORT INFORMATION
  Report Type: 
  Country: None (occurrence: None)
  Receive Date: 20100823
  Receipt Date: 20100809
  Transmission Date: 20110219
  Serious: Yes (Hospitalization, Other)
  Sender: FDA-Public Use
  Company Number: US-ELI_LILLY_AND_COMPANY-US201008002644

PATIENT
  Sex: Female

DRUGS (5)
  1. HUMULIN 70/30 [Suspect]
     Indication: DIABETES MELLITUS
     Dosage: 35 U, EACH MORNING
  2. HUMULIN 70/30 [Suspect]
     Dosage: 15 U, EACH EVENING
  3. NOVOLIN R [Concomitant]
     Dosage: UNK, AS NEEDED
  4. PLAVIX [Concomitant]
  5. PREDNISONE [Concomitant]

REACTIONS (6)
  - BLOOD GLUCOSE INCREASED [None]
  - DIALYSIS [None]
  - DRUG INEFFECTIVE [None]
  - HOSPITALISATION [None]
  - RENAL TRANSPLANT [None]
  - VISUAL ACUITY REDUCED [None]
